FAERS Safety Report 8759913 (Version 1)
Quarter: 2012Q4

REPORT INFORMATION
  Report Type: 
  Country: US (occurrence: US)
  Receive Date: 20120829
  Receipt Date: 20120829
  Transmission Date: 20130627
  Serious: Yes (Other)
  Sender: FDA-Public Use
  Company Number: US-INCYTE CORPORATION-2012IN000906

PATIENT
  Age: 72 Year
  Sex: Male
  Weight: 90.7 kg

DRUGS (5)
  1. JAKAFI [Suspect]
     Indication: SPLENOMEGALY
     Dosage: 15 mg, bid
     Route: 048
     Dates: start: 20120109
  2. JAKAFI [Suspect]
     Indication: MYELOFIBROSIS
     Dosage: 15 mg, bid
     Route: 048
  3. PREDNISONE [Concomitant]
     Dosage: 20 mg, qd for 1 week, then 1 week off; then repeat schedule
  4. SIMVASTATIN [Concomitant]
     Dosage: UNK
  5. MVI [Concomitant]
     Dosage: 1 DF, qd

REACTIONS (4)
  - Parkinsonism [Not Recovered/Not Resolved]
  - Axonal neuropathy [Not Recovered/Not Resolved]
  - Muscular weakness [Not Recovered/Not Resolved]
  - Anaemia [Unknown]
